FAERS Safety Report 6600306-1 (Version None)
Quarter: 2010Q1

REPORT INFORMATION
  Report Type: 
  Country: None (occurrence: None)
  Receive Date: 20100217
  Receipt Date: 20100203
  Transmission Date: 20100710
  Serious: Yes (Other)
  Sender: FDA-Public Use
  Company Number: DE-GDP-09407251

PATIENT
  Sex: Male

DRUGS (2)
  1. METVIX (METHYL AMINOLEVULINATE HYDROCHLORIDE) 16 % [Suspect]
     Indication: ACTINIC KERATOSIS
     Dosage: (1 DF TOPICAL)
     Route: 061
     Dates: start: 20091125, end: 20091125
  2. OLMESARTAN MEDOXOMIL [Suspect]

REACTIONS (2)
  - MYOPIA [None]
  - VITREOUS DETACHMENT [None]
